FAERS Safety Report 5619479-2 (Version None)
Quarter: 2008Q1

REPORT INFORMATION
  Report Type: 
  Country: None (occurrence: None)
  Receive Date: 20080114
  Receipt Date: 20070418
  Transmission Date: 20080703
  Serious: Yes (Hospitalization)
  Sender: FDA-Public Use
  Company Number: FEI2007-0625

PATIENT
  Age: 39 Year
  Sex: Female
  Weight: 56.246 kg

DRUGS (5)
  1. PARAGARD T 380A [Suspect]
     Indication: ASHERMAN'S SYNDROME
     Dosage: INTRA-UTERINE
     Route: 015
     Dates: start: 20070326, end: 20070406
  2. PARAGARD T 380A [Suspect]
     Indication: CONTRACEPTION
     Dosage: INTRA-UTERINE
     Route: 015
     Dates: start: 20070326, end: 20070406
  3. DOXYCYCLINE [Concomitant]
  4. PREMARIN [Concomitant]
  5. PROVERA (EMDROXYPROGESTERONE ACETATE) [Concomitant]

REACTIONS (2)
  - ABDOMINAL PAIN [None]
  - VAGINAL DISCHARGE [None]
